FAERS Safety Report 5331392-7 (Version None)
Quarter: 2007Q2

REPORT INFORMATION
  Report Type: 
  Country: None (occurrence: None)
  Receive Date: 20070522
  Receipt Date: 20070515
  Transmission Date: 20071010
  Serious: Yes (Hospitalization)
  Sender: FDA-Public Use
  Company Number: US-SANOFI-SYNTHELABO-A03200703080

PATIENT
  Sex: Female

DRUGS (3)
  1. CARDIZEM [Concomitant]
     Dosage: UNK
     Route: 065
  2. DIOVAN [Concomitant]
     Indication: HYPERTENSION
     Dosage: UNK
     Route: 065
  3. PLAVIX [Suspect]
     Indication: STENT PLACEMENT
     Route: 048
     Dates: start: 20000601, end: 20070301

REACTIONS (5)
  - CHILLS [None]
  - COUGH [None]
  - PAIN [None]
  - PULMONARY EMBOLISM [None]
  - PYREXIA [None]
